FAERS Safety Report 22387149 (Version 1)
Quarter: 2023Q2

REPORT INFORMATION
  Report Type: Spontaneous
  Country: IT (occurrence: IT)
  Receive Date: 20230531
  Receipt Date: 20230531
  Transmission Date: 20230722
  Serious: Yes (Death, Hospitalization, Other)
  Sender: FDA-Public Use
  Company Number: IT-AMGEN-ITASP2023088239

PATIENT

DRUGS (5)
  1. CARFILZOMIB [Suspect]
     Active Substance: CARFILZOMIB
     Indication: Plasma cell myeloma refractory
     Dosage: UNK
     Route: 065
  2. CARFILZOMIB [Suspect]
     Active Substance: CARFILZOMIB
     Indication: Granulocyte-colony stimulating factor level increased
  3. FILGRASTIM [Suspect]
     Active Substance: FILGRASTIM
     Indication: Haematopoietic stem cell mobilisation
     Dosage: UNK
     Route: 065
  4. LENALIDOMIDE [Suspect]
     Active Substance: LENALIDOMIDE
     Indication: Plasma cell myeloma refractory
     Dosage: UNK
     Route: 065
  5. DEXAMETHASONE [Suspect]
     Active Substance: DEXAMETHASONE
     Indication: Plasma cell myeloma refractory
     Dosage: UNK
     Route: 065

REACTIONS (35)
  - Plasma cell myeloma [Fatal]
  - Death [Fatal]
  - Acute pulmonary oedema [Fatal]
  - Graft versus host disease [Fatal]
  - Respiratory tract infection [Fatal]
  - COVID-19 pneumonia [Fatal]
  - Adverse event [Unknown]
  - Anaemia [Unknown]
  - Thrombocytopenia [Unknown]
  - Neutropenia [Unknown]
  - Gastrointestinal disorder [Unknown]
  - Infection [Unknown]
  - Renal impairment [Unknown]
  - Rash [Unknown]
  - Pyrexia [Unknown]
  - Neuropathy peripheral [Unknown]
  - Renal injury [Unknown]
  - Muscle spasms [Unknown]
  - Fatigue [Unknown]
  - Hypertension [Unknown]
  - Arrhythmia [Unknown]
  - Cardiac failure [Unknown]
  - Cardiac failure congestive [Unknown]
  - Myocardial ischaemia [Unknown]
  - Thrombosis [Unknown]
  - Deep vein thrombosis [Unknown]
  - Cerebrovascular accident [Unknown]
  - Hepatotoxicity [Unknown]
  - Renal failure [Unknown]
  - Cardiac disorder [Unknown]
  - Diarrhoea [Unknown]
  - Therapy partial responder [Unknown]
  - Alanine aminotransferase increased [Unknown]
  - COVID-19 [Unknown]
  - Aspartate aminotransferase increased [Unknown]
